FAERS Safety Report 8167813-4 (Version None)
Quarter: 2012Q1

REPORT INFORMATION
  Report Type: 
  Country: None (occurrence: None)
  Receive Date: 20120227
  Receipt Date: 20101001
  Transmission Date: 20120608
  Serious: Yes (Death, Other)
  Sender: FDA-Public Use
  Company Number: ES-ROCHE-1038611

PATIENT

DRUGS (4)
  1. XELODA [Suspect]
     Indication: ADENOCARCINOMA PANCREAS
     Dosage: ON DAYS 2 TO 15
     Route: 065
  2. XELODA [Suspect]
     Indication: BILE DUCT CANCER
  3. OXALIPLATIN [Suspect]
     Indication: ADENOCARCINOMA PANCREAS
     Dosage: ON DAY 1 OF A 3 WEEK CYCLE
     Route: 065
  4. OXALIPLATIN [Suspect]
     Indication: BILE DUCT CANCER

REACTIONS (10)
  - DIARRHOEA [None]
  - THROMBOCYTOPENIA [None]
  - VOMITING [None]
  - DECREASED APPETITE [None]
  - ANAEMIA [None]
  - NEUROTOXICITY [None]
  - PALMAR-PLANTAR ERYTHRODYSAESTHESIA SYNDROME [None]
  - DEATH [None]
  - NEUTROPENIA [None]
  - ASTHENIA [None]
